FAERS Safety Report 4701334-3 (Version None)
Quarter: 2005Q2

REPORT INFORMATION
  Report Type: 
  Country: None (occurrence: None)
  Receive Date: 20050627
  Receipt Date: 20050615
  Transmission Date: 20051028
  Serious: Yes (Other)
  Sender: FDA-Public Use
  Company Number: 2005088929

PATIENT
  Sex: Female
  Weight: 109.7705 kg

DRUGS (1)
  1. BENADRYL [Suspect]
     Indication: PHARYNGEAL HYPOAESTHESIA
     Dosage: A SPRAY INHER THROAT ONCE,ORAL
     Route: 048
     Dates: start: 19900101, end: 19900101

REACTIONS (3)
  - DRUG HYPERSENSITIVITY [None]
  - DYSPNOEA [None]
  - NAUSEA [None]
